FAERS Safety Report 18180453 (Version 1)
Quarter: 2020Q3

REPORT INFORMATION
  Report Type: Spontaneous
  Country: DE (occurrence: DE)
  Receive Date: 20200821
  Receipt Date: 20200821
  Transmission Date: 20201103
  Serious: Yes (Other)
  Sender: FDA-Public Use
  Company Number: DE-MYLANLABS-2020M1071632

PATIENT
  Age: 58 Year
  Sex: Female

DRUGS (5)
  1. VOLTAREN RESINAT                   /00372305/ [Interacting]
     Active Substance: DICLOFENAC
     Indication: PAIN
     Dosage: 1 DOSAGE FORM, QD
     Route: 065
     Dates: start: 20200130, end: 20200201
  2. PARACETAMOL [Suspect]
     Active Substance: ACETAMINOPHEN
     Indication: PAIN
     Dosage: 2 DOSAGE FORM, BID (0.5 DAY)
     Route: 065
     Dates: start: 20200129, end: 20200129
  3. ROSUVASTATIN                       /01588602/ [Interacting]
     Active Substance: ROSUVASTATIN CALCIUM
     Indication: BLOOD CHOLESTEROL INCREASED
     Dosage: 5 MILLIGRAM, QD
     Route: 065
     Dates: start: 20191202, end: 202003
  4. ROSUVASTATIN                       /01588602/ [Interacting]
     Active Substance: ROSUVASTATIN CALCIUM
     Dosage: 5 MILLIGRAM, QD
     Route: 065
     Dates: start: 202003, end: 20200504
  5. ROSUVASTATIN                       /01588602/ [Interacting]
     Active Substance: ROSUVASTATIN CALCIUM
     Dosage: 5 MILLIGRAM, QD
     Route: 065
     Dates: start: 20200604, end: 20200608

REACTIONS (3)
  - Drug interaction [Unknown]
  - Breath odour [Recovering/Resolving]
  - Sinusitis bacterial [Recovering/Resolving]

NARRATIVE: CASE EVENT DATE: 20200202
